FAERS Safety Report 6324760-8 (Version None)
Quarter: 2009Q3

REPORT INFORMATION
  Report Type: 
  Country: None (occurrence: None)
  Receive Date: 20090824
  Receipt Date: 20090504
  Transmission Date: 20100115
  Serious: No
  Sender: FDA-Public Use
  Company Number: US-ABBOTT-09P-163-0571460-00

PATIENT
  Sex: Female
  Weight: 87.622 kg

DRUGS (18)
  1. NIASPAN [Suspect]
     Indication: BLOOD CHOLESTEROL INCREASED
     Route: 048
     Dates: start: 20090429
  2. ASPIRIN [Concomitant]
     Indication: CARDIOVASCULAR DISORDER
     Route: 048
  3. LIPITOR [Concomitant]
     Indication: BLOOD CHOLESTEROL INCREASED
     Route: 048
  4. TOPROL-XL [Concomitant]
     Indication: CARDIOVASCULAR DISORDER
     Route: 048
  5. RAMIPRIL [Concomitant]
     Indication: CARDIOVASCULAR DISORDER
     Route: 048
  6. ZEGERID [Concomitant]
     Indication: GASTROOESOPHAGEAL REFLUX DISEASE
     Dosage: 40/1100 MG
     Route: 048
  7. DETROL [Concomitant]
     Indication: HYPERTONIC BLADDER
     Route: 048
  8. ALLEGRA [Concomitant]
     Indication: HYPERSENSITIVITY
     Route: 048
  9. ACTOS [Concomitant]
     Indication: TYPE 2 DIABETES MELLITUS
     Route: 048
  10. MAGNESIUM [Concomitant]
     Indication: MEDICAL DIET
     Route: 048
  11. VITAMIN D [Concomitant]
     Indication: MEDICAL DIET
     Route: 048
  12. FOLIC ACID [Concomitant]
     Indication: MEDICAL DIET
     Route: 048
  13. SPIRIVA [Concomitant]
     Indication: ASTHMA
     Route: 055
  14. CALTRATE 600 + D [Concomitant]
     Indication: MEDICAL DIET
     Route: 048
  15. BONIVA [Concomitant]
     Indication: OSTEOPENIA
     Route: 048
  16. XANAX [Concomitant]
     Indication: INSOMNIA
     Route: 047
  17. XANAX [Concomitant]
     Indication: ANXIETY
  18. ALEVE [Concomitant]
     Indication: PAIN
     Route: 048

REACTIONS (3)
  - ADNEXA UTERI PAIN [None]
  - DIZZINESS [None]
  - FLUSHING [None]
